FAERS Safety Report 5375596-6 (Version None)
Quarter: 2007Q2

REPORT INFORMATION
  Report Type: 
  Country: None (occurrence: None)
  Receive Date: 20070629
  Receipt Date: 20070621
  Transmission Date: 20071010
  Serious: Yes (Disabling, Other)
  Sender: FDA-Public Use
  Company Number: PFIZER INC-2007051760

PATIENT
  Sex: Male
  Weight: 122.5 kg

DRUGS (2)
  1. NEURONTIN [Suspect]
     Indication: DIABETIC NEUROPATHY
     Route: 048
     Dates: start: 20030703, end: 20030704
  2. BEXTRA [Suspect]

REACTIONS (6)
  - BALANCE DISORDER [None]
  - DRUG INEFFECTIVE [None]
  - GAIT DISTURBANCE [None]
  - HYPOAESTHESIA [None]
  - PARALYSIS [None]
  - TOOTHACHE [None]
